FAERS Safety Report 13101779 (Version 4)
Quarter: 2018Q1

REPORT INFORMATION
  Report Type: Spontaneous
  Country: US (occurrence: US)
  Receive Date: 20170110
  Receipt Date: 20180219
  Transmission Date: 20180508
  Serious: No
  Sender: FDA-Public Use
  Company Number: US-PFIZER INC-2017007231

PATIENT
  Age: 67 Year
  Sex: Male

DRUGS (1)
  1. XELJANZ XR [Suspect]
     Active Substance: TOFACITINIB CITRATE
     Indication: RHEUMATOID ARTHRITIS
     Dosage: 11 MG, UNK

REACTIONS (11)
  - Herpes zoster [Unknown]
  - Ocular hyperaemia [Unknown]
  - Eye pain [Unknown]
  - Burning sensation [Unknown]
  - Pain of skin [Unknown]
  - Headache [Unknown]
  - Scab [Unknown]
  - Rash [Unknown]
  - Eye irritation [Unknown]
  - Eye pruritus [Unknown]
  - Pruritus [Unknown]
